FAERS Safety Report 15724635 (Version 1)
Quarter: 2018Q4

REPORT INFORMATION
  Report Type: Spontaneous
  Country: TW (occurrence: TW)
  Receive Date: 20181214
  Receipt Date: 20181214
  Transmission Date: 20190205
  Serious: Yes (Hospitalization)
  Sender: FDA-Public Use
  Company Number: TW-IMPAX LABORATORIES, LLC-2018-IPXL-04043

PATIENT
  Age: 55 Year
  Sex: Female

DRUGS (3)
  1. AMISULPRID [Suspect]
     Active Substance: AMISULPRIDE
     Indication: BIPOLAR I DISORDER
     Dosage: UNK
     Route: 065
  2. LAMOTRIGINE ODT [Suspect]
     Active Substance: LAMOTRIGINE
     Indication: BIPOLAR I DISORDER
     Dosage: 100 MILLIGRAM, DAILY
     Route: 065
  3. CARBAMAZEPINE. [Suspect]
     Active Substance: CARBAMAZEPINE
     Indication: BIPOLAR I DISORDER
     Dosage: UNK
     Route: 065

REACTIONS (3)
  - Mania [Unknown]
  - Pancytopenia [Recovered/Resolved]
  - Hyponatraemia [Recovered/Resolved]
